FAERS Safety Report 14056668 (Version 1)
Quarter: 2017Q4

REPORT INFORMATION
  Report Type: Spontaneous
  Country: IT (occurrence: IT)
  Receive Date: 20171006
  Receipt Date: 20171006
  Transmission Date: 20180321
  Serious: Yes (Other)
  Sender: FDA-Public Use
  Company Number: IT-PFIZER INC-2017428944

PATIENT
  Age: 64 Year
  Sex: Female

DRUGS (1)
  1. CEFAMEZIN [Suspect]
     Active Substance: CEFAZOLIN
     Dosage: UNK
     Dates: start: 20170927, end: 20170927

REACTIONS (4)
  - Flushing [Unknown]
  - Vomiting [Unknown]
  - Abdominal pain upper [Unknown]
  - Oxygen saturation decreased [Unknown]

NARRATIVE: CASE EVENT DATE: 20170927
